FAERS Safety Report 9525795 (Version 4)
Quarter: 2014Q1

REPORT INFORMATION
  Report Type: Spontaneous
  Country: US (occurrence: US)
  Receive Date: 20130916
  Receipt Date: 20140213
  Transmission Date: 20141002
  Serious: Yes (Hospitalization, Other)
  Sender: FDA-Public Use
  Company Number: US-BIOGENIDEC-2013BI086549

PATIENT
  Age: 50 Year
  Sex: Female

DRUGS (21)
  1. AVONEX [Suspect]
     Indication: RELAPSING-REMITTING MULTIPLE SCLEROSIS
     Route: 030
     Dates: start: 20100622, end: 20110708
  2. AVONEX [Suspect]
     Indication: RELAPSING-REMITTING MULTIPLE SCLEROSIS
     Route: 030
     Dates: start: 20120522, end: 20130815
  3. AVONEX [Suspect]
     Indication: RELAPSING-REMITTING MULTIPLE SCLEROSIS
     Route: 030
     Dates: start: 20131106
  4. GILENYA [Concomitant]
     Indication: RELAPSING-REMITTING MULTIPLE SCLEROSIS
     Dates: start: 2011, end: 2012
  5. GILENYA [Concomitant]
     Indication: RELAPSING-REMITTING MULTIPLE SCLEROSIS
     Dates: start: 2013, end: 2013
  6. CORTEF [Concomitant]
     Indication: ADRENAL INSUFFICIENCY
     Dates: start: 2008, end: 2013
  7. OXYCONTIN [Concomitant]
     Indication: PAIN
  8. MYSOLINE [Concomitant]
  9. RITALIN [Concomitant]
     Indication: FATIGUE
  10. PAXIL [Concomitant]
     Indication: DEPRESSION
     Dates: start: 2007
  11. EFFEXOR [Concomitant]
     Indication: DEPRESSION
     Dates: start: 2007
  12. BUSPAR [Concomitant]
     Indication: ANXIETY
     Dates: start: 2007
  13. VALIUM [Concomitant]
     Indication: DEPRESSION
     Dates: start: 2007
  14. VALIUM [Concomitant]
     Indication: ANXIETY
     Dates: start: 2007
  15. ABILIFY [Concomitant]
     Indication: DEPRESSION
  16. ABILIFY [Concomitant]
     Indication: ANXIETY
  17. CORTEF [Concomitant]
     Indication: ADRENAL INSUFFICIENCY
  18. MIDODRINE [Concomitant]
     Indication: ADRENAL INSUFFICIENCY
  19. FLUOROACETATE [Concomitant]
     Indication: HYPOTENSION
  20. LYRICA [Concomitant]
     Indication: PAIN
  21. TRILEPTAL [Concomitant]
     Indication: PAIN

REACTIONS (44)
  - Spondyloarthropathy [Recovered/Resolved]
  - Automatic bladder [Recovered/Resolved]
  - Weight increased [Recovered/Resolved]
  - Dysuria [Recovered/Resolved]
  - Pollakiuria [Recovered/Resolved]
  - Blood pressure decreased [Recovered/Resolved]
  - Kidney infection [Recovered/Resolved]
  - Back pain [Not Recovered/Not Resolved]
  - Hyperhidrosis [Recovered/Resolved]
  - Pyrexia [Recovered/Resolved]
  - Urinary tract infection [Recovered/Resolved]
  - Muscular dystrophy [Not Recovered/Not Resolved]
  - Skin atrophy [Recovered/Resolved]
  - Dysgraphia [Recovered/Resolved]
  - Fall [Recovered/Resolved]
  - Gait disturbance [Not Recovered/Not Resolved]
  - Aphasia [Recovered/Resolved]
  - Memory impairment [Recovered/Resolved]
  - Hypertension [Recovered/Resolved]
  - Dyskinesia [Not Recovered/Not Resolved]
  - Coordination abnormal [Not Recovered/Not Resolved]
  - Mental impairment [Not Recovered/Not Resolved]
  - Road traffic accident [Recovered/Resolved]
  - Cognitive disorder [Not Recovered/Not Resolved]
  - Mobility decreased [Recovered/Resolved]
  - Drug screen positive [Not Recovered/Not Resolved]
  - Dysphonia [Not Recovered/Not Resolved]
  - Injection site bruising [Not Recovered/Not Resolved]
  - Muscle atrophy [Not Recovered/Not Resolved]
  - Secondary progressive multiple sclerosis [Not Recovered/Not Resolved]
  - Malaise [Recovered/Resolved]
  - Multiple sclerosis [Not Recovered/Not Resolved]
  - Amnesia [Not Recovered/Not Resolved]
  - Influenza like illness [Recovered/Resolved]
  - Bone pain [Recovered/Resolved]
  - Feeling hot [Recovered/Resolved]
  - Syncope [Recovered/Resolved]
  - Fatigue [Not Recovered/Not Resolved]
  - Asthenia [Not Recovered/Not Resolved]
  - Muscle spasticity [Not Recovered/Not Resolved]
  - Chills [Recovered/Resolved]
  - Pain [Not Recovered/Not Resolved]
  - Multiple sclerosis relapse [Recovered/Resolved]
  - Depression [Not Recovered/Not Resolved]
